FAERS Safety Report 9323738 (Version 3)
Quarter: 2013Q3

REPORT INFORMATION
  Report Type: Report from Study
  Country: AU (occurrence: AU)
  Receive Date: 20130603
  Receipt Date: 20130712
  Transmission Date: 20140515
  Serious: Yes (Hospitalization, Other)
  Sender: FDA-Public Use
  Company Number: PHHY2013AU054970

PATIENT
  Age: 49 Year
  Sex: Female

DRUGS (5)
  1. CLOZARIL [Suspect]
     Dosage: 250 MG
     Dates: start: 20130409
  2. CLOZARIL [Suspect]
     Dosage: 400 MG, QD
  3. TAMOXIFEN [Concomitant]
     Dosage: 20 MG (MORNING)
     Route: 048
  4. MESALAZINE [Concomitant]
     Dosage: 1000 MG, TID
     Route: 048
  5. QUETIAPINE [Concomitant]
     Dosage: 25 MG (NIGHT)
     Route: 048

REACTIONS (4)
  - Psychotic disorder [Recovering/Resolving]
  - Hostility [Recovering/Resolving]
  - Paranoia [Recovering/Resolving]
  - Drug ineffective [Unknown]
